FAERS Safety Report 13781069 (Version 2)
Quarter: 2017Q3

REPORT INFORMATION
  Report Type: Report from Study
  Country: US (occurrence: US)
  Receive Date: 20170724
  Receipt Date: 20170726
  Transmission Date: 20171127
  Serious: No
  Sender: FDA-Public Use
  Company Number: US-AMGEN-USASL2017107255

PATIENT
  Age: 47 Year
  Sex: Female

DRUGS (2)
  1. ENBREL [Suspect]
     Active Substance: ETANERCEPT
     Indication: PRODUCT USED FOR UNKNOWN INDICATION
     Dosage: 50 MG, QWK
     Route: 065
     Dates: start: 20170701
  2. POTASSIUM [Concomitant]
     Active Substance: POTASSIUM
     Dosage: UNK

REACTIONS (6)
  - Injection site rash [Unknown]
  - Injection site bruising [Recovering/Resolving]
  - Injection site pain [Unknown]
  - Injection site pruritus [Unknown]
  - Diarrhoea [Unknown]
  - Injection site erythema [Unknown]

NARRATIVE: CASE EVENT DATE: 201707
